FAERS Safety Report 5938189-5 (Version None)
Quarter: 2008Q4

REPORT INFORMATION
  Report Type: 
  Country: None (occurrence: None)
  Receive Date: 20081031
  Receipt Date: 20081020
  Transmission Date: 20090506
  Serious: Yes (Other)
  Sender: FDA-Public Use
  Company Number: GB-BAUSCH-2008BL004501

PATIENT
  Age: 49 Year
  Sex: Male

DRUGS (6)
  1. PREDNISOLONE [Suspect]
     Indication: CONJUNCTIVITIS
     Dates: start: 20030301
  2. CYCLOSPORINE [Suspect]
     Indication: CONJUNCTIVITIS
     Dates: start: 20030301
  3. CYCLOSPORINE [Suspect]
     Dates: start: 20030901
  4. DAPSONE [Suspect]
     Indication: CONJUNCTIVITIS
     Dates: start: 20030901
  5. DAPSONE [Suspect]
     Dates: start: 20040401
  6. MYCOPHENOLATE SODIUM [Suspect]
     Indication: CONJUNCTIVITIS
     Dates: start: 20040401

REACTIONS (4)
  - CATARACT [None]
  - CORNEAL PERFORATION [None]
  - DRUG INEFFECTIVE [None]
  - KERATITIS [None]
